FAERS Safety Report 7367154-9 (Version None)
Quarter: 2011Q1

REPORT INFORMATION
  Report Type: 
  Country: None (occurrence: None)
  Receive Date: 20110311
  Receipt Date: 20110228
  Transmission Date: 20110831
  Serious: Yes (Death)
  Sender: FDA-Public Use
  Company Number: DE-004852

PATIENT
  Sex: Male
  Weight: 81 kg

DRUGS (1)
  1. FIRMAGON [Suspect]
     Indication: PROSTATE CANCER
     Dosage: (240 MG 1X SUBCUTANEOUS)
     Route: 058
     Dates: start: 20110127, end: 20110127

REACTIONS (2)
  - SUDDEN CARDIAC DEATH [None]
  - CARDIAC ARREST [None]
